FAERS Safety Report 21338672 (Version 2)
Quarter: 2022Q4

REPORT INFORMATION
  Report Type: Spontaneous
  Country: US (occurrence: US)
  Receive Date: 20220915
  Receipt Date: 20221001
  Transmission Date: 20230113
  Serious: Yes (Hospitalization, Other)
  Sender: FDA-Public Use
  Company Number: US-TEVA-2022-US-2071882

PATIENT
  Sex: Female

DRUGS (12)
  1. DIDANOSINE [Suspect]
     Active Substance: DIDANOSINE
     Indication: Perinatal HIV infection
     Route: 065
  2. TENOFOVIR DISOPROXIL FUMARATE [Suspect]
     Active Substance: TENOFOVIR DISOPROXIL FUMARATE
     Indication: Perinatal HIV infection
     Route: 065
  3. ZIDOVUDINE [Suspect]
     Active Substance: ZIDOVUDINE
     Indication: Perinatal HIV infection
     Route: 065
  4. LAMIVUDINE [Suspect]
     Active Substance: LAMIVUDINE
     Indication: Perinatal HIV infection
     Route: 065
  5. ABACAVIR [Suspect]
     Active Substance: ABACAVIR
     Indication: Perinatal HIV infection
     Route: 065
  6. STAVUDINE [Suspect]
     Active Substance: STAVUDINE
     Indication: Perinatal HIV infection
     Route: 065
  7. NELFINAVIR [Concomitant]
     Active Substance: NELFINAVIR
     Indication: Perinatal HIV infection
     Route: 065
  8. RITONAVIR [Concomitant]
     Active Substance: RITONAVIR
     Indication: Perinatal HIV infection
     Route: 065
  9. NEVIRAPINE [Concomitant]
     Active Substance: NEVIRAPINE
     Indication: Perinatal HIV infection
     Route: 065
  10. AMPRENAVIR [Concomitant]
     Active Substance: AMPRENAVIR
     Indication: Perinatal HIV infection
     Route: 065
  11. LOPINAVIR\RITONAVIR [Concomitant]
     Active Substance: LOPINAVIR\RITONAVIR
     Indication: Perinatal HIV infection
     Route: 065
  12. DARUNAVIR\RITONAVIR [Concomitant]
     Active Substance: DARUNAVIR\RITONAVIR
     Indication: Perinatal HIV infection
     Route: 065

REACTIONS (2)
  - Gastrointestinal disorder [Unknown]
  - Pancreatitis relapsing [Unknown]
